FAERS Safety Report 8466774-8 (Version None)
Quarter: 2012Q2

REPORT INFORMATION
  Report Type: 
  Country: None (occurrence: None)
  Receive Date: 20120626
  Receipt Date: 20120622
  Transmission Date: 20120825
  Serious: Yes (Other)
  Sender: FDA-Public Use
  Company Number: US-CELGENEUS-163-21880-12060373

PATIENT
  Sex: Female

DRUGS (5)
  1. REVLIMID [Suspect]
     Indication: MULTIPLE MYELOMA
     Dosage: 25 MILLIGRAM
     Route: 048
     Dates: start: 20071004
  2. DEXAMETHASONE [Concomitant]
     Indication: CHEMOTHERAPY
     Dosage: 4 MILLIGRAM
     Route: 065
  3. CALCIUM WITH D [Concomitant]
     Route: 065
  4. VELCADE [Concomitant]
     Indication: CHEMOTHERAPY
     Route: 065
  5. ZOMETA [Concomitant]
     Route: 065

REACTIONS (2)
  - TREATMENT NONCOMPLIANCE [None]
  - SPINAL DISORDER [None]
